FAERS Safety Report 4620807-5 (Version None)
Quarter: 2005Q2

REPORT INFORMATION
  Report Type: 
  Country: None (occurrence: None)
  Receive Date: 20050315
  Receipt Date: 20050214
  Transmission Date: 20051028
  Serious: No
  Sender: FDA-Public Use
  Company Number: US-YAMANOUCHI-YPA20050046

PATIENT
  Age: 68 Year
  Sex: Female
  Weight: 99.7913 kg

DRUGS (8)
  1. VESICARE [Suspect]
     Indication: HYPERTONIC BLADDER
     Dosage: 5 MG DAILY, PO
     Route: 048
     Dates: start: 20050127, end: 20050213
  2. SANCTURA [Concomitant]
  3. VERAPAMIL [Concomitant]
  4. CANDASARTAN [Concomitant]
  5. HYDROCHLOROTHIAZIDE [Concomitant]
  6. PREMARIN [Concomitant]
  7. HYOSCYAMINE [Concomitant]
  8. ELMIRON [Concomitant]

REACTIONS (2)
  - BLOOD GLUCOSE INCREASED [None]
  - CHROMATURIA [None]
